FAERS Safety Report 8118256-0 (Version None)
Quarter: 2012Q1

REPORT INFORMATION
  Report Type: 
  Country: None (occurrence: None)
  Receive Date: 20120201
  Receipt Date: 20120119
  Transmission Date: 20120608
  Serious: Yes (Death, Life-Threatening, Hospitalization)
  Sender: FDA-Public Use
  Company Number: 2012MA001179

PATIENT
  Age: 66 Year
  Sex: Male

DRUGS (3)
  1. TORSEMIDE [Concomitant]
  2. COTRIM [Concomitant]
  3. METFORMIN HYDROCHLORIDE [Suspect]
     Indication: DIABETES MELLITUS
     Dosage: 2000 MG;QD;PO
     Route: 048

REACTIONS (6)
  - LABORATORY TEST ABNORMAL [None]
  - NAUSEA [None]
  - DYSPNOEA [None]
  - LACTIC ACIDOSIS [None]
  - VOMITING [None]
  - RENAL FAILURE ACUTE [None]
